FAERS Safety Report 11381869 (Version 1)
Quarter: 2015Q3

REPORT INFORMATION
  Report Type: Report from Study
  Country: JP (occurrence: JP)
  Receive Date: 20150814
  Receipt Date: 20150814
  Transmission Date: 20151125
  Serious: Yes (Hospitalization)
  Sender: FDA-Public Use
  Company Number: JP-ASTRAZENECA-2015SE78128

PATIENT
  Age: 73 Year
  Sex: Male
  Weight: 55.7 kg

DRUGS (3)
  1. GLACTIV [Concomitant]
     Active Substance: SITAGLIPTIN
     Indication: TYPE 2 DIABETES MELLITUS
     Route: 048
  2. INTAL [Concomitant]
     Active Substance: CROMOLYN SODIUM
     Dosage: OPTIMAL DOSE
     Route: 047
     Dates: start: 20140627, end: 20140710
  3. FORXIGA [Suspect]
     Active Substance: DAPAGLIFLOZIN
     Indication: TYPE 2 DIABETES MELLITUS
     Route: 048
     Dates: start: 20140609

REACTIONS (2)
  - Carotid artery stenosis [Recovering/Resolving]
  - Lumbar spinal stenosis [Recovering/Resolving]

NARRATIVE: CASE EVENT DATE: 201408
